FAERS Safety Report 9015556 (Version 1)
Quarter: 2013Q1

REPORT INFORMATION
  Report Type: Spontaneous
  Country: US (occurrence: None)
  Receive Date: 20130110
  Receipt Date: 20130110
  Transmission Date: 20140127
  Serious: Yes (Other)
  Sender: FDA-Public Use
  Company Number: None

PATIENT
  Age: 52 Year
  Sex: Female

DRUGS (1)
  1. REGORAFENIB [Suspect]

REACTIONS (3)
  - Erythema [None]
  - Tenderness [None]
  - Blood pressure increased [None]
